FAERS Safety Report 7651353-2 (Version None)
Quarter: 2011Q3

REPORT INFORMATION
  Report Type: 
  Country: None (occurrence: None)
  Receive Date: 20110802
  Receipt Date: 20110719
  Transmission Date: 20111222
  Serious: No
  Sender: FDA-Public Use
  Company Number: PHHY2011US65588

PATIENT
  Sex: Male
  Weight: 105.6 kg

DRUGS (6)
  1. TRICOR [Concomitant]
  2. LISINOPRIL [Suspect]
  3. TASIGNA [Suspect]
     Indication: CHRONIC MYELOID LEUKAEMIA
     Dosage: 300 MG, Q12H
     Route: 048
     Dates: start: 20110408
  4. VYTORIN [Concomitant]
  5. HYDROCHLOROTHIAZIDE [Concomitant]
  6. ATENOLOL [Concomitant]

REACTIONS (2)
  - PAIN IN EXTREMITY [None]
  - GOUT [None]
